FAERS Safety Report 23559722 (Version 1)
Quarter: 2024Q1

REPORT INFORMATION
  Report Type: Spontaneous
  Country: US (occurrence: US)
  Receive Date: 20240223
  Receipt Date: 20240223
  Transmission Date: 20240410
  Serious: No
  Sender: FDA-Public Use
  Company Number: US-PFIZER INC-202400046655

PATIENT
  Age: 67 Year
  Sex: Female

DRUGS (3)
  1. PAXLOVID [Suspect]
     Active Substance: NIRMATRELVIR\RITONAVIR
     Indication: COVID-19 treatment
     Dosage: UNK
     Dates: start: 20240205, end: 20240209
  2. SAFEWAY [Concomitant]
     Active Substance: ALCOHOL\DIMETHICONE\PETROLATUM\TRICLOSAN
     Dosage: UNK
     Dates: start: 20240202, end: 20240203
  3. ACETAMINOPHEN [Concomitant]
     Active Substance: ACETAMINOPHEN
     Dosage: UNK
     Dates: start: 20240202, end: 20240205

REACTIONS (7)
  - Nasal discomfort [Not Recovered/Not Resolved]
  - Throat irritation [Not Recovered/Not Resolved]
  - Cough [Not Recovered/Not Resolved]
  - Pruritus [Not Recovered/Not Resolved]
  - Eye disorder [Not Recovered/Not Resolved]
  - Fatigue [Not Recovered/Not Resolved]
  - Nasal congestion [Not Recovered/Not Resolved]

NARRATIVE: CASE EVENT DATE: 20240218
